FAERS Safety Report 9342770 (Version 2)
Quarter: 2013Q3

REPORT INFORMATION
  Report Type: Spontaneous
  Country: US (occurrence: US)
  Receive Date: 20130611
  Receipt Date: 20130703
  Transmission Date: 20140515
  Serious: Yes (Death)
  Sender: FDA-Public Use
  Company Number: US-GILEAD-2013-0076792

PATIENT
  Sex: Female

DRUGS (5)
  1. LETAIRIS [Suspect]
     Indication: PULMONARY HYPERTENSION
     Dosage: 5 MG, QD
     Dates: start: 20130214, end: 20130528
  2. LETAIRIS [Suspect]
     Indication: SCLERODERMA
  3. LETAIRIS [Suspect]
     Indication: PRODUCT USED FOR UNKNOWN INDICATION
  4. LETAIRIS [Suspect]
     Indication: ANGIOGRAM
  5. LETAIRIS [Suspect]
     Indication: MITRAL VALVE STENOSIS

REACTIONS (4)
  - Pneumonia [Fatal]
  - Pulmonary hypertension [Fatal]
  - Mitral valve stenosis [Fatal]
  - Disease progression [Fatal]
